FAERS Safety Report 7034062-2 (Version None)
Quarter: 2010Q4

REPORT INFORMATION
  Report Type: 
  Country: None (occurrence: None)
  Receive Date: 20101006
  Receipt Date: 20100610
  Transmission Date: 20110411
  Serious: Yes (Other)
  Sender: FDA-Public Use
  Company Number: 712687

PATIENT
  Age: 17 Year
  Sex: Male

DRUGS (9)
  1. THIOPENTAL SODIUM [Suspect]
     Indication: SURGERY
     Dosage: 500 MG MILLIGRAM(S)
     Dates: start: 20100513, end: 20100513
  2. CHLORHEXIDINE GLUCONATE [Suspect]
     Indication: SURGERY
     Dates: start: 20100513, end: 20100513
  3. METRONIDAZOLE [Suspect]
     Indication: SURGERY
     Dosage: 1.5 G GRAM(S)
     Dates: start: 20100513, end: 20100513
  4. (CEFALOTIN) [Suspect]
     Indication: SURGERY
     Dosage: 2 G GRAM(S)
     Dates: start: 20100513, end: 20100513
  5. FENTANYL CITRATE [Suspect]
     Indication: SURGERY
     Dosage: 22.5 ?G MICROGRAM(S)
     Dates: start: 20100513, end: 20100513
  6. (PERFALGAN) [Suspect]
     Indication: SURGERY
     Dosage: 1 G GRAM(S)
     Dates: start: 20100513, end: 20100513
  7. (VENOFUNDIN /00375601/) [Suspect]
     Indication: SURGERY
     Dosage: 500 ML MILLILITRE(S)
     Dates: start: 20100513, end: 20100513
  8. (SEVORANE) [Suspect]
     Indication: SURGERY
     Dates: start: 20100513, end: 20100513
  9. (CURACIT) [Concomitant]

REACTIONS (3)
  - ERYTHEMA [None]
  - LABILE BLOOD PRESSURE [None]
  - TACHYCARDIA [None]
